FAERS Safety Report 8301373-X (Version None)
Quarter: 2012Q2

REPORT INFORMATION
  Report Type: 
  Country: None (occurrence: None)
  Receive Date: 20120420
  Receipt Date: 20120417
  Transmission Date: 20120825
  Serious: Yes (Other)
  Sender: FDA-Public Use
  Company Number: US-SANOFI-AVENTIS-2012SA013973

PATIENT
  Age: 61 Year
  Sex: Female

DRUGS (7)
  1. LANTUS [Suspect]
     Route: 058
     Dates: start: 19950101, end: 20120201
  2. ANALGESICS [Concomitant]
  3. OPTICLICK [Suspect]
     Dates: start: 19950101, end: 20120201
  4. METFORMIN HCL [Concomitant]
     Dosage: DOSE:100 UNIT(S)
  5. LANTUS [Suspect]
     Dosage: 25-30 UNITS THREE TO TIMES A DAY
     Route: 058
     Dates: start: 20120201
  6. OPTICLICK [Suspect]
     Dates: start: 20120201
  7. ACTOS [Concomitant]
     Dosage: DOSE:20 UNIT(S)

REACTIONS (3)
  - BACK DISORDER [None]
  - DECREASED APPETITE [None]
  - BLOOD GLUCOSE INCREASED [None]
